FAERS Safety Report 17143620 (Version 2)
Quarter: 2020Q1

REPORT INFORMATION
  Report Type: Spontaneous
  Country: US (occurrence: US)
  Receive Date: 20191212
  Receipt Date: 20200204
  Transmission Date: 20200409
  Serious: No
  Sender: FDA-Public Use
  Company Number: US-PFIZER INC-2019532716

PATIENT
  Age: 9 Year
  Sex: Male
  Weight: 29.3 kg

DRUGS (1)
  1. GENOTROPIN [Suspect]
     Active Substance: SOMATROPIN
     Indication: BLOOD GROWTH HORMONE
     Dosage: UNK

REACTIONS (4)
  - Wrong technique in device usage process [Unknown]
  - Incorrect dose administered [Unknown]
  - Blood glucose decreased [Unknown]
  - Product dose omission [Unknown]
